FAERS Safety Report 9657763 (Version 4)
Quarter: 2013Q4

REPORT INFORMATION
  Report Type: Report from Study
  Country: US (occurrence: US)
  Receive Date: 20131030
  Receipt Date: 20131209
  Transmission Date: 20140711
  Serious: Yes (Death)
  Sender: FDA-Public Use
  Company Number: US-PFIZER INC-2011206299

PATIENT
  Age: 60 Year
  Sex: Male
  Weight: 85.71 kg

DRUGS (3)
  1. TOFACITINIB CITRATE [Suspect]
     Indication: KIDNEY TRANSPLANT REJECTION
     Dosage: 5 MG, 2X/DAY
     Route: 048
     Dates: start: 20060406, end: 20110916
  2. TOFACITINIB CITRATE [Suspect]
     Indication: IMMUNOSUPPRESSANT DRUG THERAPY
  3. PREDNISONE [Concomitant]
     Indication: IMMUNOSUPPRESSANT DRUG THERAPY
     Dosage: 5 MG, DAILY
     Route: 048
     Dates: start: 20050928, end: 20120630

REACTIONS (1)
  - Lung squamous cell carcinoma metastatic [Fatal]
